FAERS Safety Report 4305868-5 (Version None)
Quarter: 2004Q1

REPORT INFORMATION
  Report Type: 
  Country: None (occurrence: None)
  Receive Date: 20040225
  Receipt Date: 20040216
  Transmission Date: 20041129
  Serious: No
  Sender: FDA-Public Use
  Company Number: 2004-113082-NL

PATIENT
  Age: 52 Year
  Sex: Female

DRUGS (7)
  1. MIRTAZAPINE [Suspect]
     Indication: DEPRESSION
     Dosage: 15 MG QD ORAL
     Route: 048
     Dates: start: 20040114, end: 20040131
  2. AMITRIPTYLINE HCL [Concomitant]
  3. DIHYDROCODEINE [Concomitant]
  4. PARACETAMOL [Concomitant]
  5. NAPROXEN [Concomitant]
  6. ZOPICLONE [Concomitant]
  7. PREMPAK-C [Concomitant]

REACTIONS (4)
  - FACE OEDEMA [None]
  - OEDEMA PERIPHERAL [None]
  - PAIN [None]
  - WEIGHT INCREASED [None]
